FAERS Safety Report 9219245 (Version 1)
Quarter: 2013Q2

REPORT INFORMATION
  Report Type: Spontaneous
  Country: US (occurrence: US)
  Receive Date: 20130409
  Receipt Date: 20130409
  Transmission Date: 20140414
  Serious: No
  Sender: FDA-Public Use
  Company Number: US-B.I. PHARMACEUTICALS,INC./RIDGEFIELD-2013-BI-07217BP

PATIENT
  Age: 64 Year
  Sex: Female
  Weight: 50 kg

DRUGS (2)
  1. ZANTAC (RANITIDINE HYDROCHLORIDE) [Suspect]
     Indication: RASH
     Route: 048
     Dates: start: 20130311, end: 20130311
  2. BENADRYL [Concomitant]
     Indication: RASH
     Route: 048

REACTIONS (4)
  - Throat tightness [Recovered/Resolved]
  - Headache [Recovered/Resolved]
  - Pain in jaw [Recovered/Resolved]
  - Pain in extremity [Recovered/Resolved]
